FAERS Safety Report 23960516 (Version 1)
Quarter: 2024Q2

REPORT INFORMATION
  Report Type: Spontaneous
  Country: FR (occurrence: FR)
  Receive Date: 20240611
  Receipt Date: 20240611
  Transmission Date: 20240716
  Serious: Yes (Other)
  Sender: FDA-Public Use
  Company Number: FR-AFSSAPS-LL2024000470

PATIENT
  Age: 41 Year
  Sex: Female

DRUGS (2)
  1. AZITHROMYCIN [Suspect]
     Active Substance: AZITHROMYCIN
     Indication: Eye infection toxoplasmal
     Dosage: UNK
     Route: 048
     Dates: start: 20240125
  2. PYRIMETHAMINE [Suspect]
     Active Substance: PYRIMETHAMINE
     Indication: Eye infection toxoplasmal
     Dosage: UNK
     Route: 048
     Dates: start: 20240125, end: 20240215

REACTIONS (1)
  - Acute kidney injury [Recovered/Resolved]

NARRATIVE: CASE EVENT DATE: 20240215
